FAERS Safety Report 9164888 (Version 1)
Quarter: 2013Q1

REPORT INFORMATION
  Report Type: Spontaneous
  Country: US (occurrence: US)
  Receive Date: 20130315
  Receipt Date: 20130315
  Transmission Date: 20140127
  Serious: No
  Sender: FDA-Public Use
  Company Number: US-MYLANLABS-2012S1024585

PATIENT
  Age: 76 Year
  Sex: Male
  Weight: 90.72 kg

DRUGS (9)
  1. CLOPIDOGREL TABLETS USP [Suspect]
     Indication: ATRIAL FIBRILLATION
     Route: 048
     Dates: start: 20121003, end: 20121110
  2. LISINOPRIL [Concomitant]
  3. ATENOLOL [Concomitant]
  4. SIMVASTATIN [Concomitant]
  5. COENZYME Q10 [Concomitant]
  6. MVI [Concomitant]
  7. FISH OIL [Concomitant]
  8. GLIPIZIDE [Concomitant]
  9. GINGKO BILOBA [Concomitant]
     Route: 048

REACTIONS (1)
  - Blood glucose increased [Not Recovered/Not Resolved]
